FAERS Safety Report 8549951-7 (Version None)
Quarter: 2012Q3

REPORT INFORMATION
  Report Type: 
  Country: None (occurrence: None)
  Receive Date: 20120720
  Receipt Date: 20120720
  Transmission Date: 20120928
  Serious: Yes (Other)
  Sender: FDA-Public Use
  Company Number: None

PATIENT
  Sex: Female

DRUGS (1)
  1. XELODA [Suspect]
     Indication: BREAST CANCER
     Dosage: 2000 MG BI D PO
     Route: 048
     Dates: start: 20120626

REACTIONS (7)
  - DEHYDRATION [None]
  - ABDOMINAL PAIN [None]
  - DIZZINESS [None]
  - HAEMATOCHEZIA [None]
  - STOMATITIS [None]
  - DIARRHOEA [None]
  - VOMITING [None]
